FAERS Safety Report 13860827 (Version 1)
Quarter: 2017Q3

REPORT INFORMATION
  Report Type: Spontaneous
  Country: FR (occurrence: FR)
  Receive Date: 20170811
  Receipt Date: 20170811
  Transmission Date: 20171127
  Serious: Yes (Hospitalization)
  Sender: FDA-Public Use
  Company Number: FR-FRESENIUS KABI-FK201706907

PATIENT
  Age: 36 Year
  Sex: Male

DRUGS (3)
  1. CISPLATIN. [Concomitant]
     Active Substance: CISPLATIN
     Indication: METASTASES TO BONE
     Route: 065
  2. PACLITAXEL 6MG/ML CONCENTRATE FOR SOLUTION FOR INFUSION [Suspect]
     Active Substance: PACLITAXEL
     Indication: METASTASES TO BONE
     Route: 042
     Dates: start: 20170626, end: 20170626
  3. IFOSFAMIDE. [Concomitant]
     Active Substance: IFOSFAMIDE
     Indication: METASTASES TO BONE
     Route: 065

REACTIONS (5)
  - Chest pain [Recovered/Resolved]
  - Tremor [Recovered/Resolved]
  - Hypotension [Recovered/Resolved]
  - Nausea [Recovered/Resolved]
  - Hyperhidrosis [Recovered/Resolved]

NARRATIVE: CASE EVENT DATE: 20170626
